FAERS Safety Report 7553424-8 (Version None)
Quarter: 2011Q2

REPORT INFORMATION
  Report Type: 
  Country: None (occurrence: None)
  Receive Date: 20110617
  Receipt Date: 20110603
  Transmission Date: 20111010
  Serious: Yes (Life-Threatening, Hospitalization)
  Sender: FDA-Public Use
  Company Number: DE-RANBAXY-2009RR-22347

PATIENT
  Age: 74 Year
  Sex: Male
  Weight: 125 kg

DRUGS (13)
  1. BISOPROLOL FUMARATE [Suspect]
     Indication: HYPERTENSION
     Dosage: 5 MG, QD
     Route: 048
     Dates: start: 20050101, end: 20080927
  2. INSULIN [Suspect]
     Dosage: 60 IU, UNK
     Dates: start: 20080801
  3. SODIUM BICARBONATE [Concomitant]
     Dosage: UNK
     Dates: start: 20080923
  4. CEFTRIAXONE [Concomitant]
     Dosage: 2 G, QD
     Route: 042
  5. HALOPERIDOL [Concomitant]
  6. ALLOPURINOL [Concomitant]
     Indication: HYPERURICAEMIA
     Dosage: 300 MG, QD
     Route: 048
     Dates: start: 20050101, end: 20080927
  7. SIMVASTATIN [Concomitant]
     Indication: HYPERLIPIDAEMIA
     Dosage: 20 MG, QD
     Route: 048
     Dates: start: 20050101, end: 20080927
  8. XIPAMIDE [Concomitant]
     Indication: RENAL FAILURE
     Dosage: 20 MG, QD
     Route: 048
     Dates: start: 20050101, end: 20080926
  9. INSULIN [Suspect]
     Indication: TYPE 2 DIABETES MELLITUS
     Dosage: 45 IU, BID
     Route: 058
     Dates: start: 20050101, end: 20080921
  10. FUROSEMIDE [Concomitant]
     Indication: RENAL FAILURE
     Dosage: 20 MG, BID
     Route: 048
     Dates: start: 20050101, end: 20080926
  11. ASPIRIN [Concomitant]
     Dosage: 100 MG, QD
     Route: 048
     Dates: start: 20050101, end: 20080927
  12. ENALAPRIL MALEATE [Suspect]
     Indication: RENAL FAILURE
     Dosage: 5 MG, BID
     Route: 048
     Dates: start: 20080101, end: 20080926
  13. LASIX [Concomitant]
     Dosage: 40 MG, UNK
     Dates: start: 20080923

REACTIONS (17)
  - HYPOGLYCAEMIA [None]
  - DRUG INTERACTION [None]
  - DIARRHOEA [None]
  - ALCOHOL ABUSE [None]
  - MYOCARDIAL INFARCTION [None]
  - HYPOPHAGIA [None]
  - BLOOD CREATINE PHOSPHOKINASE INCREASED [None]
  - URINARY INCONTINENCE [None]
  - DELIRIUM [None]
  - WITHDRAWAL SYNDROME [None]
  - ASTHENIA [None]
  - ENCOPRESIS [None]
  - CARDIAC FAILURE [None]
  - BLOOD GLUCOSE FLUCTUATION [None]
  - ANXIETY [None]
  - CARDIAC ARREST [None]
  - RHABDOMYOLYSIS [None]
